FAERS Safety Report 10055898 (Version 2)
Quarter: 2014Q3

REPORT INFORMATION
  Report Type: Spontaneous
  Country: IT (occurrence: IT)
  Receive Date: 20140403
  Receipt Date: 20140911
  Transmission Date: 20150326
  Serious: Yes (Life-Threatening)
  Sender: FDA-Public Use
  Company Number: IT-JNJFOC-20140317050

PATIENT
  Age: 44 Year
  Sex: Female

DRUGS (5)
  1. AZATIOPRINA [Concomitant]
     Active Substance: AZATHIOPRINE
     Indication: COLITIS ULCERATIVE
     Route: 048
  2. MESAVANCOL [Concomitant]
     Active Substance: MESALAMINE
     Indication: COLITIS ULCERATIVE
     Route: 048
  3. ORTHO EVRA [Suspect]
     Active Substance: ETHINYL ESTRADIOL\NORELGESTROMIN
     Indication: CONTRACEPTION
     Route: 062
  4. ORTHO EVRA [Suspect]
     Active Substance: ETHINYL ESTRADIOL\NORELGESTROMIN
     Indication: CONTRACEPTION
     Route: 062
     Dates: start: 201312
  5. MEDROL [Concomitant]
     Active Substance: METHYLPREDNISOLONE
     Indication: COLITIS ULCERATIVE
     Route: 048

REACTIONS (11)
  - Subarachnoid haemorrhage [Recovering/Resolving]
  - Traumatic haemorrhage [Unknown]
  - Auricular haematoma [Unknown]
  - Hypotension [Recovered/Resolved]
  - Mastoiditis [Unknown]
  - Coma [Recovering/Resolving]
  - Central nervous system infection [Unknown]
  - Epilepsy [Recovering/Resolving]
  - Colitis [Recovering/Resolving]
  - Anaemia [Recovering/Resolving]
  - Intracranial venous sinus thrombosis [Recovering/Resolving]

NARRATIVE: CASE EVENT DATE: 20140116
